FAERS Safety Report 22654911 (Version 3)
Quarter: 2023Q4

REPORT INFORMATION
  Report Type: Spontaneous
  Country: CN (occurrence: CN)
  Receive Date: 20230629
  Receipt Date: 20231006
  Transmission Date: 20240109
  Serious: Yes (Life-Threatening, Hospitalization, Disabling)
  Sender: FDA-Public Use
  Company Number: CN-BAYER-2023A090800

PATIENT
  Age: 74 Year
  Sex: Male
  Weight: 70 kg

DRUGS (1)
  1. ULTRAVIST [Suspect]
     Active Substance: IOPROMIDE
     Indication: Arterial therapeutic procedure
     Dosage: UNK UNK, ONCE
     Route: 042
     Dates: start: 20230606, end: 20230606

REACTIONS (2)
  - Renal impairment [Recovering/Resolving]
  - Oliguria [None]

NARRATIVE: CASE EVENT DATE: 20230607
